FAERS Safety Report 5600931-0 (Version None)
Quarter: 2008Q1

REPORT INFORMATION
  Report Type: 
  Country: None (occurrence: None)
  Receive Date: 20080124
  Receipt Date: 20080118
  Transmission Date: 20080703
  Serious: Yes (Hospitalization, Other)
  Sender: FDA-Public Use
  Company Number: SE-JNJFOC-20080105079

PATIENT
  Age: 47 Year
  Sex: Female

DRUGS (6)
  1. REMICADE [Suspect]
     Indication: RHEUMATOID ARTHRITIS
     Route: 042
  2. REMICADE [Suspect]
     Indication: POLYARTHRITIS
     Route: 042
  3. SALAZOPYRIN [Concomitant]
  4. METHOTREXATE [Concomitant]
  5. FOLACIN [Concomitant]
  6. PRONAXEN [Concomitant]

REACTIONS (1)
  - BREAST CANCER FEMALE [None]
